FAERS Safety Report 14868243 (Version 1)
Quarter: 2018Q2

REPORT INFORMATION
  Report Type: Spontaneous
  Country: FR (occurrence: FR)
  Receive Date: 20180509
  Receipt Date: 20180509
  Transmission Date: 20180711
  Serious: Yes (Other)
  Sender: FDA-Public Use
  Company Number: FR-MERCK KGAA-2047436

PATIENT
  Age: 57 Year
  Sex: Female

DRUGS (1)
  1. NOVOTHYROX [Suspect]
     Active Substance: LEVOTHYROXINE SODIUM
     Indication: AUTOIMMUNE THYROIDITIS
     Dates: start: 201706

REACTIONS (11)
  - Social avoidant behaviour [None]
  - Bone pain [None]
  - Diarrhoea [None]
  - Fatigue [None]
  - Loss of personal independence in daily activities [None]
  - Insomnia [None]
  - Mental fatigue [None]
  - Hair injury [None]
  - Major depression [None]
  - Accident [None]
  - Alopecia [None]

NARRATIVE: CASE EVENT DATE: 201706
